FAERS Safety Report 7812161-2 (Version None)
Quarter: 2011Q4

REPORT INFORMATION
  Report Type: 
  Country: None (occurrence: None)
  Receive Date: 20111013
  Receipt Date: 20111011
  Transmission Date: 20120403
  Serious: Yes (Other)
  Sender: FDA-Public Use
  Company Number: US-GLAXOSMITHKLINE-A0948598A

PATIENT
  Age: 53 Year
  Sex: Female

DRUGS (4)
  1. TRILEPTAL [Concomitant]
  2. TRAZODONE HYDROCHLORIDE [Concomitant]
  3. NICODERM CQ [Suspect]
     Indication: SMOKING CESSATION THERAPY
     Route: 062
     Dates: start: 20111006, end: 20111010
  4. VALIUM [Concomitant]

REACTIONS (17)
  - SUICIDAL IDEATION [None]
  - AGITATION [None]
  - PANIC ATTACK [None]
  - DRUG INEFFECTIVE [None]
  - DEPRESSION [None]
  - DIARRHOEA [None]
  - CONDITION AGGRAVATED [None]
  - NIGHTMARE [None]
  - MANIA [None]
  - ABDOMINAL DISCOMFORT [None]
  - ANXIETY [None]
  - GASTRIC DISORDER [None]
  - MIDDLE INSOMNIA [None]
  - NICOTINE DEPENDENCE [None]
  - FEELING ABNORMAL [None]
  - CRYING [None]
  - IRRITABILITY [None]
